FAERS Safety Report 13249500 (Version 1)
Quarter: 2017Q1

REPORT INFORMATION
  Report Type: Spontaneous
  Country: US (occurrence: US)
  Receive Date: 20170218
  Receipt Date: 20170218
  Transmission Date: 20170428
  Serious: No
  Sender: FDA-Public Use
  Company Number: US-ALLERGAN-1668280US

PATIENT
  Age: 66 Year
  Sex: Female

DRUGS (3)
  1. SYNTHROID [Concomitant]
     Active Substance: LEVOTHYROXINE SODIUM
     Indication: THYROID DISORDER
     Dosage: UNK UNK, QD
     Route: 048
  2. KLONOPIN [Concomitant]
     Active Substance: CLONAZEPAM
     Indication: ANXIETY
     Dosage: UNK UNK, QD
     Route: 048
  3. RESTASIS [Suspect]
     Active Substance: CYCLOSPORINE
     Indication: DRY EYE
     Dosage: 2 GTT, BID
     Route: 047
     Dates: start: 20160907

REACTIONS (5)
  - Confusional state [Not Recovered/Not Resolved]
  - Eye irritation [Not Recovered/Not Resolved]
  - Limb discomfort [Not Recovered/Not Resolved]
  - Erythema of eyelid [Not Recovered/Not Resolved]
  - Eye pruritus [Not Recovered/Not Resolved]

NARRATIVE: CASE EVENT DATE: 20160907
